FAERS Safety Report 7524933-2 (Version None)
Quarter: 2011Q2

REPORT INFORMATION
  Report Type: 
  Country: None (occurrence: None)
  Receive Date: 20110606
  Receipt Date: 20110524
  Transmission Date: 20111010
  Serious: Yes (Other)
  Sender: FDA-Public Use
  Company Number: AU-ELI_LILLY_AND_COMPANY-AU201105007042

PATIENT
  Age: 55 Year
  Sex: Male

DRUGS (4)
  1. CYMBALTA [Suspect]
     Dosage: 90 MG, UNKNOWN
  2. CYMBALTA [Suspect]
     Indication: DEPRESSION
     Dosage: 60 MG, UNKNOWN
     Dates: start: 20100501
  3. CYMBALTA [Suspect]
     Dosage: 120 MG, UNKNOWN
  4. OPIOIDS [Concomitant]
     Indication: NECK PAIN

REACTIONS (1)
  - OEDEMA PERIPHERAL [None]
